FAERS Safety Report 6484952-4 (Version None)
Quarter: 2009Q4

REPORT INFORMATION
  Report Type: 
  Country: None (occurrence: None)
  Receive Date: 20091209
  Receipt Date: 20090810
  Transmission Date: 20100525
  Serious: No
  Sender: FDA-Public Use
  Company Number: US-AMGEN-KDL350541

PATIENT
  Sex: Female

DRUGS (9)
  1. ENBREL [Suspect]
     Indication: ANKYLOSING SPONDYLITIS
     Route: 058
     Dates: start: 20021203
  2. TRAMADOL HCL [Concomitant]
  3. BUPROPION HCL [Concomitant]
  4. PREDNISONE [Concomitant]
  5. MECLIZINE [Concomitant]
  6. GABAPENTIN [Concomitant]
  7. CLONAZEPAM [Concomitant]
  8. LEVOTHYROXINE SODIUM [Concomitant]
  9. LISINOPRIL [Concomitant]

REACTIONS (5)
  - CONTUSION [None]
  - FALL [None]
  - MUSCULOSKELETAL CHEST PAIN [None]
  - PAIN [None]
  - ROTATOR CUFF SYNDROME [None]
